FAERS Safety Report 4300903-2 (Version None)
Quarter: 2004Q1

REPORT INFORMATION
  Report Type: 
  Country: None (occurrence: None)
  Receive Date: 20040219
  Receipt Date: 20040203
  Transmission Date: 20041129
  Serious: Yes (Other)
  Sender: FDA-Public Use
  Company Number: DSA_23945_2004

PATIENT
  Age: 77 Year
  Sex: Female

DRUGS (3)
  1. EPROSARTAN [Suspect]
     Indication: HYPERTENSION
     Dosage: 400 MG Q DAY PO
     Route: 048
     Dates: start: 20011201, end: 20020124
  2. PLAVIX [Concomitant]
  3. NEURONTIN [Concomitant]

REACTIONS (1)
  - HYPERSENSITIVITY [None]
